FAERS Safety Report 10802406 (Version 1)
Quarter: 2015Q1

REPORT INFORMATION
  Report Type: Spontaneous
  Country: CN (occurrence: CN)
  Receive Date: 20150217
  Receipt Date: 20150217
  Transmission Date: 20150721
  Serious: Yes (Other)
  Sender: FDA-Public Use
  Company Number: CN-BAYER-2015-016624

PATIENT

DRUGS (1)
  1. CIPROFLOXACIN BETAIN [Suspect]
     Active Substance: CIPROFLOXACIN
     Indication: ENTERITIS
     Dosage: 200 MG, QD
     Route: 042

REACTIONS (9)
  - Drug-induced liver injury [Recovering/Resolving]
  - Pyrexia [None]
  - Diarrhoea [None]
  - Nausea [None]
  - Pruritus [None]
  - Ocular icterus [Recovering/Resolving]
  - Vomiting [None]
  - Chills [None]
  - Erythema [None]
